FAERS Safety Report 6531369-X (Version None)
Quarter: 2010Q1

REPORT INFORMATION
  Report Type: 
  Country: None (occurrence: None)
  Receive Date: 20100108
  Receipt Date: 20091008
  Transmission Date: 20100710
  Serious: No
  Sender: FDA-Public Use
  Company Number: A0811202A

PATIENT
  Age: 54 Year
  Sex: Female

DRUGS (1)
  1. TYKERB [Suspect]
     Indication: DRUG USE FOR UNKNOWN INDICATION
     Dosage: 5TAB PER DAY
     Dates: start: 20091001

REACTIONS (5)
  - ASTHENOPIA [None]
  - DIARRHOEA [None]
  - FATIGUE [None]
  - RASH [None]
  - STOMATITIS [None]
